FAERS Safety Report 19951346 (Version 1)
Quarter: 2021Q4

REPORT INFORMATION
  Report Type: Spontaneous
  Country: ES (occurrence: ES)
  Receive Date: 20211014
  Receipt Date: 20211014
  Transmission Date: 20220303
  Serious: Yes (Hospitalization)
  Sender: FDA-Public Use
  Company Number: None

PATIENT
  Age: 79 Year
  Sex: Female

DRUGS (7)
  1. IVERMECTIN [Suspect]
     Active Substance: IVERMECTIN
     Indication: Acarodermatitis
     Dosage: UNK
     Dates: start: 20210822, end: 20210827
  2. AMLODIPINE\HYDROCHLOROTHIAZIDE\OLMESARTAN [Concomitant]
     Active Substance: AMLODIPINE\HYDROCHLOROTHIAZIDE\OLMESARTAN
     Indication: Hypertension
     Dosage: UNK, FILM-COATED TABLETS GENERIC, 28 TABLETS, STRENGTH : 20 MG/5 MG/12,5 MG
     Dates: start: 20200722, end: 20210918
  3. FUROSEMIDA ALTER [Concomitant]
     Indication: Cardiac failure
     Dosage: UNK
     Dates: start: 20180405
  4. LEVOFLOXACINO ACCORD [Concomitant]
     Indication: Tooth abscess
     Dosage: UNK, 500MG FILM-COATED TABLETS GENERIC, 10 TABLETS
     Dates: start: 20210821, end: 20210827
  5. PERMETRINA [Concomitant]
     Indication: Acarodermatitis
     Dates: start: 20210815, end: 20210917
  6. AMOXICILLIN\CLAVULANIC ACID [Concomitant]
     Active Substance: AMOXICILLIN\CLAVULANIC ACID
     Indication: Tooth abscess
     Dates: start: 20210819, end: 20210821
  7. ACECLOFENAC ACCORD [Concomitant]
     Indication: Pain
     Dosage: UNK
     Dates: start: 20210612, end: 20210811

REACTIONS (1)
  - Acute kidney injury [Not Recovered/Not Resolved]

NARRATIVE: CASE EVENT DATE: 20210917
